FAERS Safety Report 16005267 (Version 1)
Quarter: 2019Q1

REPORT INFORMATION
  Report Type: Spontaneous
  Country: US (occurrence: US)
  Receive Date: 20190226
  Receipt Date: 20190226
  Transmission Date: 20190418
  Serious: Yes (Disabling)
  Sender: FDA-Public Use
  Company Number: None

PATIENT
  Age: 71 Year
  Sex: Female

DRUGS (5)
  1. HUMIRA [Suspect]
     Active Substance: ADALIMUMAB
     Indication: PSORIATIC ARTHROPATHY
     Dosage: ?          OTHER FREQUENCY:EVERY OTHER WEEK;?
     Route: 058
     Dates: start: 20181106
  2. CELECOXIB. [Concomitant]
     Active Substance: CELECOXIB
     Dates: start: 20181018
  3. TAMIFLU [Concomitant]
     Active Substance: OSELTAMIVIR PHOSPHATE
     Dates: start: 20190225
  4. OMEPRAZOLE. [Concomitant]
     Active Substance: OMEPRAZOLE
     Dates: start: 20181018
  5. RALOXIFENE. [Concomitant]
     Active Substance: RALOXIFENE
     Dates: start: 20181018

REACTIONS (5)
  - Influenza [None]
  - Cyst [None]
  - Arthralgia [None]
  - Pain in extremity [None]
  - Rheumatoid nodule [None]
